FAERS Safety Report 19666600 (Version 1)
Quarter: 2021Q3

REPORT INFORMATION
  Report Type: Other
  Country: US (occurrence: US)
  Receive Date: 20210806
  Receipt Date: 20210806
  Transmission Date: 20211014
  Serious: Yes (Other)
  Sender: FDA-Public Use
  Company Number: US-UMEDICA-000124

PATIENT
  Age: 37 Year
  Sex: Male

DRUGS (2)
  1. SILDENAFIL. [Suspect]
     Active Substance: SILDENAFIL
     Indication: CHORIORETINOPATHY
     Route: 048
  2. PREDNISONE. [Concomitant]
     Active Substance: PREDNISONE
     Indication: SURGERY
     Route: 048

REACTIONS (2)
  - Foveal degeneration [Unknown]
  - Detachment of retinal pigment epithelium [Unknown]
